FAERS Safety Report 7709332-2 (Version None)
Quarter: 2011Q3

REPORT INFORMATION
  Report Type: 
  Country: None (occurrence: None)
  Receive Date: 20110818
  Receipt Date: 20110811
  Transmission Date: 20111222
  Serious: Yes (Life-Threatening, Hospitalization)
  Sender: FDA-Public Use
  Company Number: 2011SP032904

PATIENT
  Age: 82 Year
  Sex: Female

DRUGS (2)
  1. SUGAMMADEX SODIUM [Suspect]
     Indication: NEUROMUSCULAR BLOCKADE REVERSAL
     Dosage: ;IV
     Route: 042
     Dates: start: 20110713, end: 20110713
  2. ROCURONIUM BROMIDE [Suspect]
     Indication: NEUROMUSCULAR BLOCKING THERAPY
     Dosage: ;IV
     Route: 042
     Dates: start: 20110713, end: 20110713

REACTIONS (4)
  - SHOCK HAEMORRHAGIC [None]
  - CAPILLARY PERMEABILITY INCREASED [None]
  - BRADYCARDIA [None]
  - DRUG INEFFECTIVE [None]
